FAERS Safety Report 15965238 (Version 1)
Quarter: 2019Q1

REPORT INFORMATION
  Report Type: Spontaneous
  Country: DE (occurrence: US)
  Receive Date: 20190215
  Receipt Date: 20190215
  Transmission Date: 20190418
  Serious: Yes (Death, Hospitalization, Other)
  Sender: FDA-Public Use
  Company Number: DE-AUROBINDO-AUR-APL-2019-007848

PATIENT

DRUGS (5)
  1. MEROPENEM FOR INJECTION USP [Suspect]
     Active Substance: MEROPENEM
     Indication: BRAIN ABSCESS
     Dosage: 2 G EVERY 6 H
     Route: 065
  2. FOSFOMYCIN [Suspect]
     Active Substance: FOSFOMYCIN
     Indication: BRAIN ABSCESS
     Dosage: UNK
     Route: 065
  3. COLISTIN [Suspect]
     Active Substance: COLISTIN
     Indication: BRAIN ABSCESS
     Dosage: UNK
     Route: 065
  4. MEROPENEM FOR INJECTION USP AND SODIUM CHLORIDE INJECTION USP IN THE [Suspect]
     Active Substance: MEROPENEM\SODIUM CHLORIDE
     Dosage: THEN INCREASED INITIALLY TO 10 G/DAY
     Route: 065
  5. MEROPENEM FOR INJECTION USP AND SODIUM CHLORIDE INJECTION USP IN THE [Suspect]
     Active Substance: MEROPENEM\SODIUM CHLORIDE
     Dosage: 15 G/DAY IN DOSES OF 2 G GIVEN OVER 3 H WILH A SINGLE DOSE OF 1 G/3H ONCE DAILY
     Route: 065

REACTIONS (8)
  - Haemorrhage intracranial [Fatal]
  - Glomerular filtration rate decreased [Unknown]
  - Impaired gastric emptying [Unknown]
  - CSF white blood cell count increased [Unknown]
  - CSF protein abnormal [Unknown]
  - Vomiting [Unknown]
  - CSF lactate abnormal [Unknown]
  - CSF red blood cell count [Unknown]
